FAERS Safety Report 24601145 (Version 1)
Quarter: 2024Q4

REPORT INFORMATION
  Report Type: Spontaneous
  Country: CA (occurrence: CA)
  Receive Date: 20241110
  Receipt Date: 20241110
  Transmission Date: 20250115
  Serious: Yes (Hospitalization)
  Sender: SANDOZ
  Company Number: CA-002147023-NVSC2024CA206500

PATIENT
  Age: 86 Year
  Sex: Female

DRUGS (1)
  1. ZOLEDRONIC ACID [Suspect]
     Active Substance: ZOLEDRONIC ACID
     Indication: Osteoporosis
     Dosage: UNK, Q12MO (1 EVERY 1 YEARS)
     Route: 065

REACTIONS (2)
  - Hospitalisation [Recovered/Resolved]
  - Product dose omission issue [Recovered/Resolved]
